FAERS Safety Report 11147344 (Version 1)
Quarter: 2015Q2

REPORT INFORMATION
  Report Type: Report from Study
  Country: US (occurrence: US)
  Receive Date: 20150528
  Receipt Date: 20150528
  Transmission Date: 20150821
  Serious: Yes (Other)
  Sender: FDA-Public Use
  Company Number: US-BRISTOL-MYERS SQUIBB COMPANY-BMS-2015-032229

PATIENT
  Age: 63 Year
  Sex: Female
  Weight: 91 kg

DRUGS (1)
  1. ABATACEPT [Suspect]
     Active Substance: ABATACEPT
     Indication: RHEUMATOID ARTHRITIS
     Dosage: 1000MG, UNK
     Route: 042

REACTIONS (4)
  - Respiratory distress [Unknown]
  - Drug ineffective [Unknown]
  - Stomatitis [Unknown]
  - Influenza like illness [Unknown]

NARRATIVE: CASE EVENT DATE: 20150515
